FAERS Safety Report 9738748 (Version 1)
Quarter: 2013Q4

REPORT INFORMATION
  Report Type: Spontaneous
  Country: US (occurrence: US)
  Receive Date: 20131209
  Receipt Date: 20131209
  Transmission Date: 20140711
  Serious: No
  Sender: FDA-Public Use
  Company Number: US-JNJFOC-20131117382

PATIENT
  Age: 78 Year
  Sex: Female

DRUGS (4)
  1. SANDOZ FENTANYL TRANSDERMAL SYSTEM [Suspect]
     Indication: MUSCULOSKELETAL PAIN
     Dosage: NDC: 0781-7240-55
     Route: 062
     Dates: start: 201311
  2. FENTANYL [Suspect]
     Indication: MUSCULOSKELETAL PAIN
     Route: 062
     Dates: end: 201311
  3. ATENOLOL [Concomitant]
     Indication: HYPERTENSION
     Route: 065
  4. TRAMADOL HYDROCHLORIDE [Concomitant]
     Indication: PAIN
     Route: 065

REACTIONS (3)
  - Influenza [Not Recovered/Not Resolved]
  - Wrong technique in drug usage process [Not Recovered/Not Resolved]
  - Asthenia [Not Recovered/Not Resolved]
